FAERS Safety Report 6987838-1 (Version None)
Quarter: 2010Q3

REPORT INFORMATION
  Report Type: 
  Country: None (occurrence: None)
  Receive Date: 20100830
  Receipt Date: 20091020
  Transmission Date: 20110219
  Serious: Yes (Hospitalization)
  Sender: FDA-Public Use
  Company Number: CIP09002915

PATIENT
  Sex: Male

DRUGS (1)
  1. ASACOL HD [Suspect]
     Indication: COLITIS ULCERATIVE
     Dosage: 800 MG THREE TIMES DAILY, ORAL
     Route: 048

REACTIONS (2)
  - RASH [None]
  - SWELLING FACE [None]
